FAERS Safety Report 22167658 (Version 1)
Quarter: 2023Q2

REPORT INFORMATION
  Report Type: Spontaneous
  Country: US (occurrence: US)
  Receive Date: 20230403
  Receipt Date: 20230403
  Transmission Date: 20230721
  Serious: No
  Sender: FDA-Public Use
  Company Number: US-PFIZER INC-202300140380

PATIENT
  Age: 97 Year
  Sex: Female

DRUGS (1)
  1. IBRANCE [Suspect]
     Active Substance: PALBOCICLIB
     Dosage: TAKE 1 CAPSULE DAILY BY MOUTH FOR 21 DAYS THEN 7 DAYS OFF
     Route: 048
     Dates: start: 20211028, end: 202303

REACTIONS (1)
  - Neoplasm progression [Not Recovered/Not Resolved]
